FAERS Safety Report 8350428-2 (Version None)
Quarter: 2012Q2

REPORT INFORMATION
  Report Type: 
  Country: None (occurrence: None)
  Receive Date: 20120510
  Receipt Date: 20120501
  Transmission Date: 20120825
  Serious: Yes (Hospitalization)
  Sender: FDA-Public Use
  Company Number: US-BAYER-2011-111635

PATIENT
  Age: 28 Year
  Sex: Female
  Weight: 58.957 kg

DRUGS (13)
  1. HYDROCODONE BITARTRATE + ACETAMINOPHEN [Concomitant]
     Dosage: UNK
     Route: 048
     Dates: start: 20100716
  2. CIMZIA [Concomitant]
     Dosage: UNK
     Route: 048
     Dates: start: 20100726
  3. PROMETHAZINE HCL [Concomitant]
     Dosage: 25 MG, UNK
     Route: 048
     Dates: start: 20100831
  4. KLONOPIN [Concomitant]
  5. NASONEX [Concomitant]
     Dosage: 50 UNK, UNK
     Dates: start: 20100729
  6. MULTI-VITAMIN [Concomitant]
     Route: 048
  7. CYMBALTA [Concomitant]
     Dosage: 60 MG, UNK
     Route: 048
     Dates: start: 20100803
  8. LIALDA [Concomitant]
     Dosage: 1.2 G, UNK
     Route: 048
     Dates: start: 20100915
  9. YASMIN [Suspect]
     Indication: ORAL CONTRACEPTION
     Dosage: UNK
     Dates: start: 20060601, end: 20091101
  10. LEXAPRO [Concomitant]
     Dosage: 20 MG, UNK
     Route: 048
     Dates: start: 20100803
  11. PANTOPRAZOLE SODIUM [Concomitant]
     Dosage: 40 MG, UNK
     Route: 048
     Dates: start: 20100911
  12. NITROFURANT MACRO [Concomitant]
     Dosage: 100 MG, UNK
     Route: 048
     Dates: start: 20100909
  13. PREDNISONE TAB [Concomitant]

REACTIONS (5)
  - ANXIETY [None]
  - INJURY [None]
  - ABDOMINAL DISCOMFORT [None]
  - NAUSEA [None]
  - CHOLECYSTITIS [None]
